FAERS Safety Report 19526250 (Version 1)
Quarter: 2021Q3

REPORT INFORMATION
  Report Type: Spontaneous
  Country: US (occurrence: US)
  Receive Date: 20210713
  Receipt Date: 20210713
  Transmission Date: 20211014
  Serious: No
  Sender: FDA-Public Use
  Company Number: None

PATIENT
  Sex: Female
  Weight: 56.25 kg

DRUGS (1)
  1. LANTUS [Suspect]
     Active Substance: INSULIN GLARGINE
     Indication: TYPE 1 DIABETES MELLITUS
     Dosage: ?          QUANTITY:100 UNITS;OTHER FREQUENCY:WITH MEALS + SNACK;?
     Route: 058

REACTIONS (3)
  - Product odour abnormal [None]
  - Blood glucose increased [None]
  - Product quality issue [None]
